FAERS Safety Report 11737880 (Version 1)
Quarter: 2015Q4

REPORT INFORMATION
  Report Type: Spontaneous
  Country: US (occurrence: None)
  Receive Date: 20151112
  Receipt Date: 20151112
  Transmission Date: 20160304
  Serious: Yes (Life-Threatening, Disabling)
  Sender: FDA-Public Use
  Company Number: None

PATIENT
  Age: 23 Year
  Sex: Female
  Weight: 63.5 kg

DRUGS (1)
  1. MEDROXYPROGESTERONE 150 MG/ML [Suspect]
     Active Substance: MEDROXYPROGESTERONE
     Indication: CONTRACEPTION
     Dosage: 2 INJECTIONS 3 MONTHS APART; EVERY 3 MONTHS
     Route: 030
     Dates: start: 20150506, end: 20150820

REACTIONS (13)
  - Menstruation irregular [None]
  - Personality change [None]
  - Social problem [None]
  - Lethargy [None]
  - Menorrhagia [None]
  - Impaired work ability [None]
  - Compulsive shopping [None]
  - Anxiety [None]
  - Abnormal behaviour [None]
  - Back pain [None]
  - Impaired reasoning [None]
  - Eating disorder [None]
  - Obsessive-compulsive disorder [None]

NARRATIVE: CASE EVENT DATE: 20150525
